FAERS Safety Report 4995728-9 (Version None)
Quarter: 2006Q1

REPORT INFORMATION
  Report Type: 
  Country: None (occurrence: None)
  Receive Date: 20060315
  Receipt Date: 20060109
  Transmission Date: 20060701
  Serious: Yes (Other)
  Sender: FDA-Public Use
  Company Number: 431515

PATIENT

DRUGS (1)
  1. BONIVA [Suspect]

REACTIONS (2)
  - ADVERSE EVENT [None]
  - BLOOD GLUCOSE DECREASED [None]
